FAERS Safety Report 5481117-X (Version None)
Quarter: 2007Q4

REPORT INFORMATION
  Report Type: 
  Country: None (occurrence: None)
  Receive Date: 20071003
  Receipt Date: 20070927
  Transmission Date: 20080405
  Serious: Yes (Other)
  Sender: FDA-Public Use
  Company Number: L07-ESP-05064

PATIENT
  Age: 43 Year
  Sex: Female

DRUGS (7)
  1. CITALOPRAM HYDROBROMIDE [Suspect]
     Indication: DEPRESSED MOOD
     Dosage: 25 MG QD
     Dates: start: 20030115
  2. CLORAZEPATE DIPOTASSIUM [Concomitant]
  3. ZOPICLONE [Concomitant]
  4. TOPIRAMATE [Concomitant]
  5. GABAPENTINE (GABAPENTIN) [Concomitant]
  6. CLONAZEPAM [Concomitant]
  7. TRAMADOL HCL [Concomitant]

REACTIONS (1)
  - RAYNAUD'S PHENOMENON [None]
